FAERS Safety Report 4503854-3 (Version None)
Quarter: 2004Q4

REPORT INFORMATION
  Report Type: 
  Country: None (occurrence: None)
  Receive Date: 20041115
  Receipt Date: 20041102
  Transmission Date: 20050328
  Serious: Yes (Death, Other)
  Sender: FDA-Public Use
  Company Number: 2004087654

PATIENT
  Age: 38 Year
  Sex: Male

DRUGS (3)
  1. GEODON [Suspect]
     Indication: SCHIZOPHRENIA, CATATONIC TYPE
     Dosage: 20 MG (20 MG, 2 IN 1 D), INTRAMUSCULAR
     Route: 030
     Dates: start: 20040916, end: 20040916
  2. HALOPERIDOL [Concomitant]
  3. FAMOTIDINE [Concomitant]

REACTIONS (2)
  - GASTRIC ULCER PERFORATION [None]
  - PERITONITIS [None]
